FAERS Safety Report 25278082 (Version 3)
Quarter: 2025Q2

REPORT INFORMATION
  Report Type: Spontaneous
  Country: PR (occurrence: PR)
  Receive Date: 20250507
  Receipt Date: 20250606
  Transmission Date: 20250717
  Serious: No
  Sender: PFIZER
  Company Number: PR-PFIZER INC-202500089705

PATIENT
  Age: 13 Year
  Sex: Male

DRUGS (1)
  1. GENOTROPIN [Suspect]
     Active Substance: SOMATROPIN
     Dosage: 1 MG, DAILY

REACTIONS (1)
  - Device mechanical issue [Unknown]
